FAERS Safety Report 22297891 (Version 3)
Quarter: 2023Q2

REPORT INFORMATION
  Report Type: Spontaneous
  Country: TR (occurrence: TR)
  Receive Date: 20230509
  Receipt Date: 20230628
  Transmission Date: 20230722
  Serious: Yes (Hospitalization, Other)
  Sender: FDA-Public Use
  Company Number: TR-ASTELLAS-2023EU001001

PATIENT
  Sex: Male

DRUGS (6)
  1. TACROLIMUS [Interacting]
     Active Substance: TACROLIMUS
     Indication: Liver transplant
     Route: 065
  2. POSACONAZOLE [Interacting]
     Active Substance: POSACONAZOLE
     Indication: Fusarium infection
     Route: 042
  3. POSACONAZOLE [Interacting]
     Active Substance: POSACONAZOLE
     Route: 042
  4. POSACONAZOLE [Interacting]
     Active Substance: POSACONAZOLE
     Dosage: UNK UNK, UNKNOWN FREQ.
     Route: 048
  5. MYCOPHENOLATE MOFETIL [Concomitant]
     Active Substance: MYCOPHENOLATE MOFETIL
     Indication: Liver transplant
     Route: 065
  6. PREDNISOLONE [Concomitant]
     Active Substance: PREDNISOLONE
     Indication: Liver transplant
     Route: 065

REACTIONS (4)
  - Pathogen resistance [Recovering/Resolving]
  - Pneumonia klebsiella [Recovering/Resolving]
  - Fusarium infection [Recovering/Resolving]
  - Drug interaction [Unknown]
